FAERS Safety Report 10172521 (Version 5)
Quarter: 2015Q1

REPORT INFORMATION
  Report Type: Report from Study
  Country: US (occurrence: US)
  Receive Date: 20140515
  Receipt Date: 20150112
  Transmission Date: 20150720
  Serious: Yes (Other)
  Sender: FDA-Public Use
  Company Number: US-SA-2014SA060745

PATIENT
  Age: 34 Year
  Sex: Male
  Weight: 138 kg

DRUGS (1)
  1. AUBAGIO [Suspect]
     Active Substance: TERIFLUNOMIDE
     Indication: MULTIPLE SCLEROSIS
     Route: 048
     Dates: start: 20140417, end: 20140430

REACTIONS (6)
  - Pain [Unknown]
  - Bedridden [Unknown]
  - Vomiting [Unknown]
  - General physical health deterioration [Unknown]
  - Diarrhoea [Unknown]
  - Gastric disorder [Not Recovered/Not Resolved]

NARRATIVE: CASE EVENT DATE: 2014
